FAERS Safety Report 8868888 (Version 1)
Quarter: 2012Q4

REPORT INFORMATION
  Report Type: 
  Country: US (occurrence: US)
  Receive Date: 20121023
  Receipt Date: 20121023
  Transmission Date: 20130627
  Serious: No
  Sender: FDA-Public Use
  Company Number: US-AMGEN-USASP2012054867

PATIENT
  Age: 57 Year
  Sex: Female
  Weight: 77.55 kg

DRUGS (9)
  1. ENBREL [Suspect]
     Indication: PRODUCT USED FOR UNKNOWN INDICATION
     Dosage: 50 mg, qwk
     Route: 058
  2. DIOVAN [Concomitant]
     Dosage: 160 mg, TAB
  3. ARAVA [Concomitant]
     Dosage: 10 mg,
  4. FISH OIL [Concomitant]
     Dosage: UNK
  5. FEOSOL [Concomitant]
     Dosage: 65 mg,
  6. MULTIVITAMINS, PLAIN [Concomitant]
     Dosage: UNK
  7. BABY ASPIRIN [Concomitant]
     Dosage: 81 mg, UNK
  8. VITAMIN C + E [Concomitant]
     Dosage: UNK
  9. CALTRATE                           /00944201/ [Concomitant]
     Dosage: 600 UNK, UNK

REACTIONS (1)
  - Rash [Unknown]
